FAERS Safety Report 21676902 (Version 1)
Quarter: 2022Q4

REPORT INFORMATION
  Report Type: Spontaneous
  Country: US (occurrence: US)
  Receive Date: 20221203
  Receipt Date: 20221203
  Transmission Date: 20230112
  Serious: Yes (Other)
  Sender: FDA-Public Use
  Company Number: US-ABBVIE-4222370

PATIENT
  Age: 52 Year
  Sex: Female

DRUGS (2)
  1. SKYRIZI [Suspect]
     Active Substance: RISANKIZUMAB-RZAA
     Indication: Crohn^s disease
     Dosage: 600 MG
     Route: 042
     Dates: start: 20221031, end: 20221031
  2. SKYRIZI [Suspect]
     Active Substance: RISANKIZUMAB-RZAA
     Indication: Crohn^s disease
     Dosage: 600 MG
     Route: 042
     Dates: start: 20221128, end: 20221128

REACTIONS (6)
  - Chest discomfort [Recovering/Resolving]
  - Eye irritation [Recovering/Resolving]
  - Dyspnoea [Recovering/Resolving]
  - Swelling [Recovered/Resolved]
  - Flushing [Recovered/Resolved]
  - Swelling face [Recovered/Resolved]

NARRATIVE: CASE EVENT DATE: 20221031
